FAERS Safety Report 5042684-3 (Version None)
Quarter: 2006Q2

REPORT INFORMATION
  Report Type: 
  Country: None (occurrence: None)
  Receive Date: 20060614
  Receipt Date: 20060112
  Transmission Date: 20061013
  Serious: Yes (Other)
  Sender: FDA-Public Use
  Company Number: LIT-002-06-CA

PATIENT
  Age: 81 Year
  Sex: Male

DRUGS (1)
  1. GAMUNEX [Suspect]
     Indication: TOXIC EPIDERMAL NECROLYSIS
     Dosage: IV
     Route: 042

REACTIONS (2)
  - ACUTE MYOCARDIAL INFARCTION [None]
  - INFUSION RELATED REACTION [None]
